FAERS Safety Report 24216490 (Version 1)
Quarter: 2024Q3

REPORT INFORMATION
  Report Type: Spontaneous
  Country: TR (occurrence: TR)
  Receive Date: 20240816
  Receipt Date: 20240816
  Transmission Date: 20241017
  Serious: Yes (Hospitalization, Other)
  Sender: RANBAXY
  Company Number: TR-SUN PHARMACEUTICAL INDUSTRIES LTD-2024R1-462896

PATIENT
  Age: 48 Year
  Sex: Male

DRUGS (6)
  1. LITHIUM [Suspect]
     Active Substance: LITHIUM
     Indication: Sleep disorder
     Dosage: 1200 MILLIGRAM, DAILY
     Route: 065
  2. LITHIUM [Suspect]
     Active Substance: LITHIUM
     Indication: Logorrhoea
  3. LITHIUM [Suspect]
     Active Substance: LITHIUM
     Indication: Irritability
  4. QUETIAPINE [Suspect]
     Active Substance: QUETIAPINE
     Indication: Sleep disorder
     Dosage: 100 MILLIGRAM, DAILY
     Route: 065
  5. QUETIAPINE [Suspect]
     Active Substance: QUETIAPINE
     Indication: Logorrhoea
     Dosage: 600 MILLIGRAM, DAILY
     Route: 065
  6. QUETIAPINE [Suspect]
     Active Substance: QUETIAPINE
     Indication: Irritability

REACTIONS (1)
  - Condition aggravated [Unknown]
